FAERS Safety Report 8876520 (Version 1)
Quarter: 2012Q4

REPORT INFORMATION
  Report Type: 
  Country: US (occurrence: US)
  Receive Date: 20121023
  Receipt Date: 20121023
  Transmission Date: 20130627
  Serious: No
  Sender: FDA-Public Use
  Company Number: US-ASTELLAS-2012US004140

PATIENT
  Sex: Female

DRUGS (1)
  1. PROGRAF [Suspect]
     Indication: RENAL TRANSPLANT
     Dosage: 4 mg, bid
     Route: 048
     Dates: start: 201004

REACTIONS (2)
  - Skin disorder [Not Recovered/Not Resolved]
  - Memory impairment [Not Recovered/Not Resolved]
